FAERS Safety Report 5286980-3 (Version None)
Quarter: 2007Q1

REPORT INFORMATION
  Report Type: 
  Country: None (occurrence: None)
  Receive Date: 20070329
  Receipt Date: 20070320
  Transmission Date: 20070707
  Serious: Yes (Other)
  Sender: FDA-Public Use
  Company Number: GXKR2007GB02709

PATIENT
  Age: 66 Year
  Sex: Male

DRUGS (6)
  1. SIMVASTATIN [Suspect]
     Indication: MYOCARDIAL INFARCTION
     Dosage: 1 DF, QD, ORAL
     Route: 048
     Dates: start: 20060106, end: 20070216
  2. ASPIRIN [Concomitant]
  3. BECLOMETHASONE DIPROPIONATE [Concomitant]
  4. SALMETEROL XINAFOATE (SALMETEROL XINAFOATE) [Concomitant]
  5. TELMISARTAN (TELMISARTAN) [Concomitant]
  6. TRAMADOL HCL [Concomitant]

REACTIONS (2)
  - BLOOD CREATINE PHOSPHOKINASE INCREASED [None]
  - MYOSITIS [None]
